FAERS Safety Report 5309858-5 (Version None)
Quarter: 2007Q2

REPORT INFORMATION
  Report Type: 
  Country: None (occurrence: None)
  Receive Date: 20070427
  Receipt Date: 20070417
  Transmission Date: 20071010
  Serious: Yes (Other)
  Sender: FDA-Public Use
  Company Number: JP-ROCHE-488583

PATIENT
  Age: 4 Year
  Sex: Male
  Weight: 16 kg

DRUGS (6)
  1. TAMIFLU [Suspect]
     Route: 048
     Dates: start: 20070310, end: 20070312
  2. TAMIFLU [Suspect]
     Route: 048
     Dates: start: 20070313, end: 20070313
  3. TAMIFLU [Suspect]
     Dosage: FORM:DRY SYRUP
     Route: 048
  4. POLARAMINE [Concomitant]
     Route: 048
     Dates: start: 20070310, end: 20070313
  5. ZADITEN [Concomitant]
     Route: 048
     Dates: start: 20070310, end: 20070313
  6. MEDICON [Concomitant]
     Route: 048
     Dates: start: 20070310, end: 20070313

REACTIONS (3)
  - ABNORMAL BEHAVIOUR [None]
  - DELIRIUM [None]
  - MUSCULOSKELETAL STIFFNESS [None]
